FAERS Safety Report 17760905 (Version 2)
Quarter: 2020Q2

REPORT INFORMATION
  Report Type: Spontaneous
  Country: US (occurrence: US)
  Receive Date: 20200508
  Receipt Date: 20200514
  Transmission Date: 20200714
  Serious: Yes (Other)
  Sender: FDA-Public Use
  Company Number: US-PFIZER INC-2017031758

PATIENT
  Age: 64 Year
  Sex: Female

DRUGS (14)
  1. METFORMIN [Concomitant]
     Active Substance: METFORMIN HYDROCHLORIDE
     Dosage: 1000 MG, 1X/DAY (1 TIME A DAY)
     Route: 048
     Dates: start: 20150319
  2. FISH OIL [Concomitant]
     Active Substance: FISH OIL
     Dosage: 1200 MG, 1X/DAY
     Route: 048
     Dates: start: 20121019
  3. DICLOFENAC POTASSIUM. [Concomitant]
     Active Substance: DICLOFENAC POTASSIUM
     Dosage: 50 MG, AS NEEDED, (2 TIMES A DAY OR AS NEEDED)
     Route: 048
     Dates: start: 20161006
  4. MOBIC [Concomitant]
     Active Substance: MELOXICAM
     Dosage: 7.5 MG, 1X/DAY
     Route: 048
     Dates: start: 20161014
  5. VITAMIN D3 [Concomitant]
     Active Substance: CHOLECALCIFEROL
     Dosage: 1000 IU, ALTERNATE DAY
     Route: 048
     Dates: start: 20120716
  6. LYRICA [Suspect]
     Active Substance: PREGABALIN
     Indication: HYPERGLYCAEMIA
  7. LEVOTHYROXINE. [Concomitant]
     Active Substance: LEVOTHYROXINE
     Dosage: 75 UG, 1X/DAY
     Route: 048
     Dates: start: 20140220
  8. ASPIRIN. [Concomitant]
     Active Substance: ASPIRIN
     Dosage: 81 MG, DAILY
  9. METOPROLOL TARTRATE. [Concomitant]
     Active Substance: METOPROLOL TARTRATE
     Dosage: 25 MG, 1X/DAY
     Route: 048
     Dates: start: 20120126
  10. LISINOPRIL. [Concomitant]
     Active Substance: LISINOPRIL
     Dosage: 20 MG, 1X/DAY
     Route: 048
     Dates: start: 20131219
  11. LYRICA [Suspect]
     Active Substance: PREGABALIN
     Indication: TYPE 2 DIABETES MELLITUS
     Dosage: 50 MG, 1X/DAY, (AT NIGHT)
     Route: 048
     Dates: start: 20170112
  12. NITROGLYCERIN. [Concomitant]
     Active Substance: NITROGLYCERIN
     Dosage: 0.4 MG, UNK, (EVERY 5 MINUTES)
     Route: 060
  13. HYDROCHLOROTHIAZIDE. [Concomitant]
     Active Substance: HYDROCHLOROTHIAZIDE
     Dosage: 25 MG, 1X/DAY
     Route: 048
     Dates: start: 20120126
  14. LOVASTATIN. [Concomitant]
     Active Substance: LOVASTATIN
     Dosage: 20 MG, 1X/DAY
     Route: 048
     Dates: start: 20150716

REACTIONS (5)
  - Off label use [Unknown]
  - Pain [Unknown]
  - Neuropathy peripheral [Unknown]
  - Insomnia [Unknown]
  - Product use in unapproved indication [Unknown]

NARRATIVE: CASE EVENT DATE: 20170112
